FAERS Safety Report 19987418 (Version 1)
Quarter: 2021Q4

REPORT INFORMATION
  Report Type: Spontaneous
  Country: FR (occurrence: FR)
  Receive Date: 20211023
  Receipt Date: 20211023
  Transmission Date: 20220303
  Serious: Yes (Hospitalization, Congenital Anomaly, Other)
  Sender: FDA-Public Use
  Company Number: FR-ABBVIE-21K-056-4126509-00

PATIENT

DRUGS (1)
  1. VALPROATE SODIUM [Suspect]
     Active Substance: VALPROATE SODIUM
     Indication: Product used for unknown indication
     Route: 064
     Dates: start: 20030320, end: 20031218

REACTIONS (23)
  - Foetal exposure during pregnancy [Unknown]
  - Peritonitis [Unknown]
  - Dysmorphism [Unknown]
  - Hypertelorism [Unknown]
  - Congenital eye disorder [Unknown]
  - Attention deficit hyperactivity disorder [Unknown]
  - Psychomotor skills impaired [Unknown]
  - Hypotonia [Unknown]
  - Cognitive disorder [Unknown]
  - Learning disorder [Unknown]
  - Cardiac murmur [Unknown]
  - Eye movement disorder [Unknown]
  - Skull malformation [Unknown]
  - Enophthalmos [Unknown]
  - Microstomia [Unknown]
  - Palatal disorder [Unknown]
  - Ear disorder [Unknown]
  - Dysmorphism [Unknown]
  - Intellectual disability [Unknown]
  - Speech disorder developmental [Unknown]
  - Appendicectomy [Unknown]
  - Nasal disorder [Unknown]
  - Pharyngeal disorder [Unknown]
